FAERS Safety Report 5112801-5 (Version None)
Quarter: 2006Q3

REPORT INFORMATION
  Report Type: 
  Country: None (occurrence: None)
  Receive Date: 20060802
  Receipt Date: 20060223
  Transmission Date: 20061208
  Serious: No
  Sender: FDA-Public Use
  Company Number: 200610808US

PATIENT
  Age: 75 Year
  Sex: Male
  Weight: 62 kg

DRUGS (10)
  1. KETEK [Suspect]
     Indication: BRONCHITIS
     Dosage: 800 MG QD PO
     Route: 048
     Dates: start: 20051230, end: 20060106
  2. KETEK [Suspect]
     Indication: LARYNGITIS
     Dosage: 800 MG QD PO
     Route: 048
     Dates: start: 20051230, end: 20060106
  3. PENICILLIN [Concomitant]
  4. STEROID [Concomitant]
  5. ACETYLSALICYLIC ACID SRT [Concomitant]
  6. LIPITOR [Concomitant]
  7. ATENOLOL [Concomitant]
  8. LISINOPRIL [Concomitant]
  9. ENABLEX [Concomitant]
  10. RABEPRAZOLE SODIUM (ACIPHEX) [Concomitant]

REACTIONS (9)
  - APHASIA [None]
  - ARRHYTHMIA [None]
  - ASTHENIA [None]
  - DEHYDRATION [None]
  - DIZZINESS [None]
  - DYSPEPSIA [None]
  - FLUSHING [None]
  - HEADACHE [None]
  - VISION BLURRED [None]
